FAERS Safety Report 21020477 (Version 1)
Quarter: 2022Q2

REPORT INFORMATION
  Report Type: Spontaneous
  Country: DE (occurrence: DE)
  Receive Date: 20220629
  Receipt Date: 20220629
  Transmission Date: 20220721
  Serious: Yes (Other)
  Sender: FDA-Public Use
  Company Number: DE-ALKEM LABORATORIES LIMITED-DE-ALKEM-2022-06473

PATIENT
  Age: 75 Year
  Sex: Female

DRUGS (1)
  1. PREGABALIN [Suspect]
     Active Substance: PREGABALIN
     Indication: Product used for unknown indication
     Dosage: 300 MILLIGRAM EVERY 1 DAY
     Route: 065
     Dates: end: 202203

REACTIONS (3)
  - Horner^s syndrome [Unknown]
  - Gait disturbance [Unknown]
  - Eyelid ptosis [Unknown]
